FAERS Safety Report 23945183 (Version 3)
Quarter: 2024Q3

REPORT INFORMATION
  Report Type: Spontaneous
  Country: JP (occurrence: JP)
  Receive Date: 20240606
  Receipt Date: 20240701
  Transmission Date: 20241017
  Serious: Yes (Hospitalization)
  Sender: EISAI
  Company Number: JP-Eisai-202402366_LEN-EC_P_1

PATIENT
  Age: 61 Year
  Sex: Female

DRUGS (2)
  1. LENVIMA [Suspect]
     Active Substance: LENVATINIB
     Indication: Endometrial cancer
     Route: 048
     Dates: start: 20240409, end: 20240611
  2. KEYTRUDA [Suspect]
     Active Substance: PEMBROLIZUMAB
     Indication: Endometrial cancer
     Route: 042
     Dates: start: 20240409, end: 20240611

REACTIONS (5)
  - Renal pelvis fistula [Not Recovered/Not Resolved]
  - Ascites [Unknown]
  - Skin exfoliation [Unknown]
  - Hypertension [Unknown]
  - Thyroiditis [Recovered/Resolved]

NARRATIVE: CASE EVENT DATE: 20240501
